FAERS Safety Report 19046615 (Version 1)
Quarter: 2021Q1

REPORT INFORMATION
  Report Type: Spontaneous
  Country: PL (occurrence: PL)
  Receive Date: 20210322
  Receipt Date: 20210322
  Transmission Date: 20210420
  Serious: Yes (Death)
  Sender: FDA-Public Use
  Company Number: PL-BIOGEN-2021BI00990457

PATIENT
  Age: 2 Year
  Sex: Male

DRUGS (1)
  1. SPINRAZA [Suspect]
     Active Substance: NUSINERSEN
     Indication: SPINAL MUSCULAR ATROPHY
     Route: 065
     Dates: start: 201909, end: 20210304

REACTIONS (2)
  - Death [Fatal]
  - Procedural pain [Unknown]

NARRATIVE: CASE EVENT DATE: 202103
